FAERS Safety Report 10504730 (Version 5)
Quarter: 2015Q1

REPORT INFORMATION
  Report Type: Spontaneous
  Country: US (occurrence: US)
  Receive Date: 20141008
  Receipt Date: 20150128
  Transmission Date: 20150720
  Serious: No
  Sender: FDA-Public Use
  Company Number: US-EISAI MEDICAL RESEARCH-AP356-00007-SPO-US

PATIENT
  Sex: Female

DRUGS (7)
  1. BELVIQ [Suspect]
     Active Substance: LORCASERIN HYDROCHLORIDE
     Dosage: 2 A DAY (DOSE UNSPECIFIED)
     Route: 048
     Dates: start: 201408, end: 201409
  2. BELVIQ [Suspect]
     Active Substance: LORCASERIN HYDROCHLORIDE
     Indication: WEIGHT DECREASED
     Route: 048
     Dates: start: 20130621, end: 201309
  3. BELVIQ [Suspect]
     Active Substance: LORCASERIN HYDROCHLORIDE
     Dates: start: 201309, end: 201310
  4. BELVIQ [Suspect]
     Active Substance: LORCASERIN HYDROCHLORIDE
     Dosage: 1 A DAY (DOSE UNSPECIFIED)
     Route: 048
     Dates: start: 201404, end: 201408
  5. BELVIQ [Suspect]
     Active Substance: LORCASERIN HYDROCHLORIDE
     Dosage: UNKNOWN
     Route: 048
     Dates: start: 201410
  6. BELVIQ [Suspect]
     Active Substance: LORCASERIN HYDROCHLORIDE
     Route: 048
     Dates: start: 201310, end: 201403
  7. PHENTERMINE [Concomitant]
     Active Substance: PHENTERMINE
     Dosage: UNKNOWN
     Dates: start: 201411

REACTIONS (14)
  - Nausea [Unknown]
  - Liver disorder [Recovering/Resolving]
  - Fatigue [Recovered/Resolved]
  - Pain [Unknown]
  - Hiccups [Unknown]
  - Fluid retention [Recovering/Resolving]
  - Constipation [Unknown]
  - Headache [Recovered/Resolved]
  - Chills [Unknown]
  - Drug ineffective [Unknown]
  - Abdominal distension [Recovering/Resolving]
  - Hepatic enzyme increased [Not Recovered/Not Resolved]
  - Intentional underdose [Unknown]
  - Muscle spasms [Unknown]

NARRATIVE: CASE EVENT DATE: 2013
